FAERS Safety Report 17963249 (Version 3)
Quarter: 2020Q3

REPORT INFORMATION
  Report Type: Spontaneous
  Country: GB (occurrence: GB)
  Receive Date: 20200630
  Receipt Date: 20200708
  Transmission Date: 20201103
  Serious: Yes (Death, Hospitalization)
  Sender: FDA-Public Use
  Company Number: GB-TEVA-2020-GB-1792280

PATIENT
  Age: 76 Year
  Sex: Male
  Weight: 79.4 kg

DRUGS (14)
  1. OXALIPLATIN. [Suspect]
     Active Substance: OXALIPLATIN
     Indication: COLORECTAL CANCER STAGE III
     Dosage: 135 MG
     Route: 042
     Dates: start: 20191115, end: 20200427
  2. CALCIUM CHLORIDE. [Concomitant]
     Active Substance: CALCIUM CHLORIDE
  3. PARACETAMOL [Concomitant]
     Active Substance: ACETAMINOPHEN
  4. APIXABAN [Concomitant]
     Active Substance: APIXABAN
  5. FERROUS SULFATE. [Concomitant]
     Active Substance: FERROUS SULFATE
  6. RANITIDINE. [Concomitant]
     Active Substance: RANITIDINE
  7. DOXAZOSIN [Concomitant]
     Active Substance: DOXAZOSIN MESYLATE
  8. MAGNESIUM SULFATE. [Concomitant]
     Active Substance: MAGNESIUM SULFATE
  9. CANDESARTAN. [Concomitant]
     Active Substance: CANDESARTAN
  10. DEXAMETHASONE. [Concomitant]
     Active Substance: DEXAMETHASONE
  11. FLUOROURACIL. [Concomitant]
     Active Substance: FLUOROURACIL
     Indication: COLORECTAL CANCER STAGE III
  12. FOLINIC ACID [Concomitant]
     Active Substance: LEUCOVORIN
  13. LORATADINE. [Concomitant]
     Active Substance: LORATADINE
  14. GRANISETRON [Concomitant]
     Active Substance: GRANISETRON

REACTIONS (6)
  - Atrial fibrillation [Fatal]
  - Pyrexia [Fatal]
  - Sinus node dysfunction [Fatal]
  - Adenocarcinoma [Fatal]
  - Dyspnoea exertional [Fatal]
  - Pneumonitis [Fatal]

NARRATIVE: CASE EVENT DATE: 20200428
